FAERS Safety Report 5147178-2 (Version None)
Quarter: 2006Q4

REPORT INFORMATION
  Report Type: 
  Country: None (occurrence: None)
  Receive Date: 20061103
  Receipt Date: 20061030
  Transmission Date: 20070319
  Serious: Yes (Hospitalization, Other)
  Sender: FDA-Public Use
  Company Number: FRWYE789028AUG06

PATIENT
  Age: 59 Year
  Sex: Male

DRUGS (1)
  1. SIROLIMUS (SIROLIMUS, UNSPEC) [Suspect]
     Indication: PROPHYLAXIS AGAINST TRANSPLANT REJECTION
     Dosage: ORAL
     Route: 048
     Dates: start: 20050422

REACTIONS (1)
  - INTESTINAL OBSTRUCTION [None]
